FAERS Safety Report 10791819 (Version 1)
Quarter: 2015Q1

REPORT INFORMATION
  Report Type: Spontaneous
  Country: US (occurrence: US)
  Receive Date: 20150213
  Receipt Date: 20150213
  Transmission Date: 20150721
  Serious: No
  Sender: FDA-Public Use
  Company Number: US-GLAXOSMITHKLINE-A1058685A

PATIENT

DRUGS (6)
  1. TRAZODONE [Concomitant]
     Active Substance: TRAZODONE HYDROCHLORIDE
  2. LAMOTRIGINE TABLET [Suspect]
     Active Substance: LAMOTRIGINE
     Indication: BIPOLAR DISORDER
     Route: 048
  3. KLONOPIN [Concomitant]
     Active Substance: CLONAZEPAM
  4. ABILIFY [Concomitant]
     Active Substance: ARIPIPRAZOLE
  5. ATIVAN [Concomitant]
     Active Substance: LORAZEPAM
  6. EFFEXOR [Concomitant]
     Active Substance: VENLAFAXINE HYDROCHLORIDE

REACTIONS (3)
  - Condition aggravated [Recovered/Resolved]
  - Depression [Unknown]
  - Drug ineffective [Unknown]
